FAERS Safety Report 9365158 (Version 1)
Quarter: 2013Q2

REPORT INFORMATION
  Report Type: Spontaneous
  Country: TR (occurrence: TR)
  Receive Date: 20130624
  Receipt Date: 20130624
  Transmission Date: 20140414
  Serious: Yes (Other)
  Sender: FDA-Public Use
  Company Number: PHHY2013TR062670

PATIENT
  Age: 44 Year
  Sex: Female

DRUGS (5)
  1. LEVETIRACETAM [Suspect]
     Dosage: 500 MG, PER DAY
  2. LEVETIRACETAM [Suspect]
     Dosage: 2000 MG, PER DAY
  3. LEVETIRACETAM [Suspect]
     Dosage: 1000 MG, PER DAY
  4. CARBAMAZEPINE [Concomitant]
     Indication: CONVULSION
     Dosage: 1000 MG, PER DAY
  5. CARBAMAZEPINE [Concomitant]
     Dosage: 800 MG, PER DAY

REACTIONS (3)
  - Hypersexuality [Recovered/Resolved]
  - Excessive masturbation [Recovered/Resolved]
  - Daydreaming [Recovered/Resolved]
